FAERS Safety Report 6749225-0 (Version None)
Quarter: 2010Q2

REPORT INFORMATION
  Report Type: 
  Country: None (occurrence: None)
  Receive Date: 20100601
  Receipt Date: 20100429
  Transmission Date: 20101027
  Serious: No
  Sender: FDA-Public Use
  Company Number: US-BAYER-201014912BCC

PATIENT
  Age: 46 Year
  Sex: Male
  Weight: 89 kg

DRUGS (2)
  1. ALEVE (CAPLET) [Suspect]
     Indication: INFLAMMATION
     Dosage: TOTAL DAILY DOSE: 880 MG  UNIT DOSE: 220 MG
     Route: 048
     Dates: start: 20100101
  2. HYDROCODONE [Concomitant]
     Route: 065

REACTIONS (2)
  - HYPERSENSITIVITY [None]
  - RASH GENERALISED [None]
